FAERS Safety Report 15916517 (Version 1)
Quarter: 2019Q1

REPORT INFORMATION
  Report Type: Spontaneous
  Country: US (occurrence: US)
  Receive Date: 20190204
  Receipt Date: 20190204
  Transmission Date: 20190417
  Serious: No
  Sender: FDA-Public Use
  Company Number: US-UNITED THERAPEUTICS-UNT-2018-021274

PATIENT
  Sex: Female
  Weight: 102.4 kg

DRUGS (4)
  1. REMODULIN [Suspect]
     Active Substance: TREPROSTINIL
     Indication: PULMONARY ARTERIAL HYPERTENSION
     Dosage: 0.02 ?G/KG, CONTINUING
     Route: 058
     Dates: start: 20180315
  2. REMODULIN [Suspect]
     Active Substance: TREPROSTINIL
     Dosage: UNK
     Route: 058
  3. OPSUMIT [Concomitant]
     Active Substance: MACITENTAN
     Indication: PRODUCT USED FOR UNKNOWN INDICATION
     Route: 065
  4. ADEMPAS [Concomitant]
     Active Substance: RIOCIGUAT
     Indication: PRODUCT USED FOR UNKNOWN INDICATION
     Route: 065

REACTIONS (7)
  - Infusion site erythema [Unknown]
  - Infusion site haemorrhage [Unknown]
  - Infusion site induration [Unknown]
  - Infusion site infection [Unknown]
  - Pyrexia [Unknown]
  - Infusion site pustule [Unknown]
  - Infusion site swelling [Unknown]

NARRATIVE: CASE EVENT DATE: 2018
